FAERS Safety Report 22887067 (Version 2)
Quarter: 2024Q1

REPORT INFORMATION
  Report Type: Spontaneous
  Country: US (occurrence: US)
  Receive Date: 20230831
  Receipt Date: 20240306
  Transmission Date: 20240410
  Serious: Yes (Hospitalization, Other)
  Sender: FDA-Public Use
  Company Number: US-HIKMA PHARMACEUTICALS-US-H14001-23-64557

PATIENT

DRUGS (8)
  1. CYCLOPHOSPHAMIDE [Suspect]
     Active Substance: CYCLOPHOSPHAMIDE
     Indication: Acute lymphocytic leukaemia
     Dosage: 1190 MILLIGRAM,  ON DAY 29
     Route: 042
     Dates: start: 20230530
  2. CYTARABINE [Suspect]
     Active Substance: CYTARABINE
     Indication: Acute lymphocytic leukaemia
     Dosage: 89 MILLIGRAM, QD, ON DAYS 29-32 AND DAYS 36-39
     Route: 042
     Dates: start: 20230530
  3. METHOTREXATE [Suspect]
     Active Substance: METHOTREXATE
     Indication: Acute lymphocytic leukaemia
     Dosage: 15 MILLIGRAM, ON DAYS 29 AND 36
     Route: 037
     Dates: start: 20230530
  4. PEGASPARGASE [Suspect]
     Active Substance: PEGASPARGASE
     Indication: Acute lymphocytic leukaemia
     Dosage: 3000 UNITS ON DAY 43
     Route: 042
     Dates: start: 20230613
  5. RUXOLITINIB [Suspect]
     Active Substance: RUXOLITINIB
     Indication: Acute lymphocytic leukaemia
     Dosage: 60 MILLIGRAM, BID, ON DAYS 29-42
     Route: 048
     Dates: start: 20230530
  6. THIOGUANINE [Suspect]
     Active Substance: THIOGUANINE
     Indication: Acute lymphocytic leukaemia
     Dosage: 60 MG FOR THREE DAYS/WEEK FOR TWO WEEKS; 80 MG FOR FOUR DAYS/WEEK FOR TWO WEEKS (DAY 29-42)
     Route: 048
     Dates: start: 20230601
  7. VINCRISTINE [Suspect]
     Active Substance: VINCRISTINE
     Indication: Acute lymphocytic leukaemia
     Dosage: 1.79 MILLIGRAM ON DAYS 43 AND 50
     Route: 042
     Dates: start: 20230613
  8. DIPHENHYDRAMINE HYDROCHLORIDE\LIDOCAINE HYDROCHLORIDE\NYSTATIN [Concomitant]
     Active Substance: DIPHENHYDRAMINE HYDROCHLORIDE\LIDOCAINE HYDROCHLORIDE\NYSTATIN
     Indication: Product used for unknown indication
     Dosage: UNK
     Route: 065
     Dates: start: 20230329

REACTIONS (20)
  - Febrile neutropenia [Recovered/Resolved]
  - Oropharyngeal pain [Unknown]
  - Moraxella infection [Unknown]
  - Petechiae [Unknown]
  - Contusion [Unknown]
  - Epistaxis [Unknown]
  - Stomatitis [Unknown]
  - Ear pain [Unknown]
  - Nausea [Unknown]
  - Sneezing [Unknown]
  - Device related infection [Unknown]
  - Agitation [Unknown]
  - Ingrowing nail [Unknown]
  - Anaemia [Unknown]
  - Thrombocytopenia [Unknown]
  - Gastrooesophageal reflux disease [Unknown]
  - Vomiting [Unknown]
  - Hyponatraemia [Unknown]
  - Blood bilirubin increased [Unknown]
  - Pyrexia [Unknown]

NARRATIVE: CASE EVENT DATE: 20230620
